FAERS Safety Report 16170021 (Version 1)
Quarter: 2019Q2

REPORT INFORMATION
  Report Type: Spontaneous
  Country: JP (occurrence: JP)
  Receive Date: 20190408
  Receipt Date: 20190408
  Transmission Date: 20190711
  Serious: Yes (Death)
  Sender: FDA-Public Use
  Company Number: JP-PFIZER INC-2018458984

PATIENT
  Age: 8 Decade

DRUGS (1)
  1. SUTENT [Suspect]
     Active Substance: SUNITINIB MALATE
     Indication: METASTATIC RENAL CELL CARCINOMA
     Dosage: 37.5 MG, CYCLIC (4 WEEKS ON/2 WEEKS OFF SCHEDULE)
     Route: 048
     Dates: start: 201810

REACTIONS (2)
  - Death [Fatal]
  - Neoplasm progression [Unknown]
